FAERS Safety Report 14628143 (Version 1)
Quarter: 2018Q1

REPORT INFORMATION
  Report Type: Spontaneous
  Country: US (occurrence: US)
  Receive Date: 20180312
  Receipt Date: 20180312
  Transmission Date: 20180509
  Serious: No
  Sender: FDA-Public Use
  Company Number: US-ALLERGAN-1715033US

PATIENT
  Sex: Female

DRUGS (16)
  1. GLUCOSAMINE [Concomitant]
     Active Substance: GLUCOSAMINE
  2. ZETIA [Concomitant]
     Active Substance: EZETIMIBE
  3. FAMOTIDINE. [Concomitant]
     Active Substance: FAMOTIDINE
     Dosage: 20 MG, UNK
  4. VITAMIN B3 [Concomitant]
     Active Substance: NIACIN
  5. POTASSIUM [Concomitant]
     Active Substance: POTASSIUM
     Dosage: 20 MEQ, UNK
  6. ESTRACE [Suspect]
     Active Substance: ESTRADIOL
     Indication: DYSPAREUNIA
     Dosage: UNK, BI-WEEKLY
     Route: 067
  7. ZINC. [Concomitant]
     Active Substance: ZINC
  8. FLUOXETIN [Concomitant]
     Active Substance: FLUOXETINE HYDROCHLORIDE
  9. VITAMIN C [Concomitant]
     Active Substance: ASCORBIC ACID
  10. TRIAMTERENE. [Concomitant]
     Active Substance: TRIAMTERENE
  11. TAURINE [Concomitant]
     Active Substance: TAURINE
  12. VITAMIN E [Concomitant]
     Active Substance: .ALPHA.-TOCOPHEROL
  13. VITAMIN D [Concomitant]
     Active Substance: CHOLECALCIFEROL
  14. MAGNESIUM [Concomitant]
     Active Substance: MAGNESIUM
     Dosage: 400 MG, UNK
  15. BIOTINE [Concomitant]
     Active Substance: LACTOPEROXIDASE BOVINE\LYSOZYME HYDROCHLORIDE
     Dosage: 10000 ?G, UNK
  16. TEMAZEPAM. [Concomitant]
     Active Substance: TEMAZEPAM
     Indication: SOMNOLENCE

REACTIONS (4)
  - Gait disturbance [Recovering/Resolving]
  - Fall [Unknown]
  - Contusion [Unknown]
  - Balance disorder [Recovering/Resolving]

NARRATIVE: CASE EVENT DATE: 20170411
